FAERS Safety Report 19671159 (Version 1)
Quarter: 2021Q3

REPORT INFORMATION
  Report Type: Report from Study
  Country: US (occurrence: US)
  Receive Date: 20210806
  Receipt Date: 20210806
  Transmission Date: 20211014
  Serious: No
  Sender: FDA-Public Use
  Company Number: NVSC2021US175308

PATIENT
  Sex: Male

DRUGS (2)
  1. ENTRESTO [Suspect]
     Active Substance: SACUBITRIL\VALSARTAN
     Indication: WHITE BLOOD CELL COUNT DECREASED
     Dosage: 24 MG
     Route: 048
  2. ENTRESTO [Suspect]
     Active Substance: SACUBITRIL\VALSARTAN
     Indication: PLATELET COUNT DECREASED

REACTIONS (3)
  - White blood cell count decreased [Unknown]
  - Product use in unapproved indication [Unknown]
  - Platelet count decreased [Unknown]
